FAERS Safety Report 14216643 (Version 2)
Quarter: 2017Q4

REPORT INFORMATION
  Report Type: Spontaneous
  Country: US (occurrence: US)
  Receive Date: 20171122
  Receipt Date: 20171214
  Transmission Date: 20180321
  Serious: No
  Sender: FDA-Public Use
  Company Number: US-ACTELION-A-NJ2017-162986

PATIENT
  Age: 61 Year
  Sex: Female

DRUGS (11)
  1. FENTANYL. [Concomitant]
     Active Substance: FENTANYL
  2. IMODIUM [Concomitant]
     Active Substance: LOPERAMIDE HYDROCHLORIDE
  3. OPSUMIT [Suspect]
     Active Substance: MACITENTAN
     Indication: PULMONARY ARTERIAL HYPERTENSION
     Dosage: 10 MG, QD
     Route: 048
     Dates: start: 20160816
  4. PERCOCET [Concomitant]
     Active Substance: ACETAMINOPHEN\OXYCODONE HYDROCHLORIDE
  5. TIZANIDINE. [Concomitant]
     Active Substance: TIZANIDINE
  6. VENTOLIN [Concomitant]
     Active Substance: ALBUTEROL SULFATE
  7. CLARITIN [Concomitant]
     Active Substance: LORATADINE
  8. ORENITRAM [Concomitant]
     Active Substance: TREPROSTINIL
  9. PEPCID [Concomitant]
     Active Substance: FAMOTIDINE
  10. PREDNISONE. [Concomitant]
     Active Substance: PREDNISONE
  11. FUROSEMIDE. [Concomitant]
     Active Substance: FUROSEMIDE

REACTIONS (9)
  - Limb injury [Unknown]
  - Pain [Unknown]
  - Diarrhoea [Unknown]
  - Loss of consciousness [Unknown]
  - Dizziness [Unknown]
  - Muscular weakness [Unknown]
  - Fall [Unknown]
  - Pain in extremity [Unknown]
  - Infection [Unknown]

NARRATIVE: CASE EVENT DATE: 20171114
